FAERS Safety Report 25597249 (Version 2)
Quarter: 2025Q3

REPORT INFORMATION
  Report Type: Spontaneous
  Country: EU (occurrence: EU)
  Receive Date: 20250723
  Receipt Date: 20250814
  Transmission Date: 20251021
  Serious: Yes (Other)
  Sender: Harrow Health
  Company Number: 006777

PATIENT
  Sex: Male

DRUGS (2)
  1. VERKAZIA [Suspect]
     Active Substance: CYCLOSPORINE
     Indication: Dry eye
     Route: 047
     Dates: start: 201909
  2. VERKAZIA [Suspect]
     Active Substance: CYCLOSPORINE
     Route: 047
     Dates: start: 2021, end: 2025

REACTIONS (2)
  - Arrhythmia [Recovered/Resolved]
  - Cardiac fibrillation [Recovered/Resolved]
